FAERS Safety Report 13094980 (Version 2)
Quarter: 2017Q1

REPORT INFORMATION
  Report Type: Spontaneous
  Country: FR (occurrence: FR)
  Receive Date: 20170106
  Receipt Date: 20170124
  Transmission Date: 20170428
  Serious: Yes (Hospitalization, Other)
  Sender: FDA-Public Use
  Company Number: FR-INDIVIOR LIMITED-INDV-097604-2016

PATIENT
  Age: 33 Year
  Sex: Male

DRUGS (5)
  1. SUBUTEX [Suspect]
     Active Substance: BUPRENORPHINE HYDROCHLORIDE
     Indication: PRODUCT USED FOR UNKNOWN INDICATION
     Dosage: 64 MG (8  TABLETS)
     Route: 065
     Dates: start: 201605
  2. SERESTA [Suspect]
     Active Substance: OXAZEPAM
     Indication: PRODUCT USED FOR UNKNOWN INDICATION
     Dosage: 350 MG (7 TABLETS OF 50MG EACH)
     Route: 065
     Dates: start: 201605
  3. TERCIAN                            /00759301/ [Suspect]
     Active Substance: CYAMEMAZINE
     Indication: PRODUCT USED FOR UNKNOWN INDICATION
     Dosage: 600 MG, (6 TABLETS OF 100MG EACH)
     Route: 065
     Dates: start: 201605
  4. VALIUM [Concomitant]
     Active Substance: DIAZEPAM
     Indication: PRODUCT USED FOR UNKNOWN INDICATION
     Dosage: UNK
     Route: 065
  5. ZOPICLONE [Suspect]
     Active Substance: ZOPICLONE
     Indication: PRODUCT USED FOR UNKNOWN INDICATION
     Dosage: 4 TABLETS, UNK
     Route: 065
     Dates: start: 201605

REACTIONS (6)
  - Bradypnoea [Recovered/Resolved]
  - Miosis [Recovered/Resolved]
  - Suicide attempt [Unknown]
  - Coma [Recovered/Resolved]
  - Overdose [Unknown]
  - Apnoea [Unknown]

NARRATIVE: CASE EVENT DATE: 20160531
